FAERS Safety Report 4287098-9 (Version None)
Quarter: 2004Q1

REPORT INFORMATION
  Report Type: 
  Country: None (occurrence: None)
  Receive Date: 20040126
  Receipt Date: 20031002
  Transmission Date: 20041129
  Serious: No
  Sender: FDA-Public Use
  Company Number: USA030945949

PATIENT
  Sex: Female

DRUGS (5)
  1. FORTEO [Suspect]
     Dates: start: 20030801
  2. AVELOX [Concomitant]
  3. MEDROL DOESPAK (METHYLPREDNISOLONE) [Concomitant]
  4. PROLEX D [Concomitant]
  5. RHINOCORT [Concomitant]

REACTIONS (4)
  - DRUG INTERACTION [None]
  - MOVEMENT DISORDER [None]
  - PAIN [None]
  - SENSORY DISTURBANCE [None]
